FAERS Safety Report 7580737-6 (Version None)
Quarter: 2011Q2

REPORT INFORMATION
  Report Type: 
  Country: None (occurrence: None)
  Receive Date: 20110527
  Receipt Date: 20110310
  Transmission Date: 20111010
  Serious: Yes (Other)
  Sender: FDA-Public Use
  Company Number: US201103004542

PATIENT
  Sex: Male

DRUGS (3)
  1. GLYBURIDE [Concomitant]
  2. METFORMIN HCL [Concomitant]
  3. BYETTA [Suspect]
     Dosage: 10 UG

REACTIONS (1)
  - PANCREATITIS [None]
